FAERS Safety Report 8605070-2 (Version None)
Quarter: 2012Q3

REPORT INFORMATION
  Report Type: 
  Country: None (occurrence: None)
  Receive Date: 20120820
  Receipt Date: 20120810
  Transmission Date: 20120928
  Serious: Yes (Death, Hospitalization)
  Sender: FDA-Public Use
  Company Number: GB-JNJFOC-20120515011

PATIENT
  Age: 46 Year
  Sex: Male

DRUGS (6)
  1. TPN [Concomitant]
     Route: 042
  2. PREDNISOLONE [Concomitant]
     Route: 065
  3. REMICADE [Suspect]
     Indication: CROHN'S DISEASE
     Dosage: 4-5 INFUSIONS
     Route: 042
  4. REMICADE [Suspect]
     Dosage: 4TH INFUSION
     Route: 042
     Dates: start: 20110111
  5. ZOMETA [Suspect]
     Indication: PRODUCT USED FOR UNKNOWN INDICATION
     Route: 065
     Dates: start: 20110117
  6. AZATHIOPRINE SODIUM [Concomitant]
     Route: 065

REACTIONS (4)
  - SEPTIC SHOCK [None]
  - LEUKOPENIA [None]
  - IMMUNOSUPPRESSION [None]
  - BRONCHOPNEUMONIA [None]
